FAERS Safety Report 18013443 (Version 1)
Quarter: 2020Q3

REPORT INFORMATION
  Report Type: Report from Study
  Country: CA (occurrence: CA)
  Receive Date: 20200713
  Receipt Date: 20200713
  Transmission Date: 20201103
  Serious: Yes (Other)
  Sender: FDA-Public Use
  Company Number: CA-ACCORD-189567

PATIENT
  Age: 48 Year
  Sex: Male

DRUGS (5)
  1. METHOTREXATE. [Suspect]
     Active Substance: METHOTREXATE
     Indication: PRODUCT USED FOR UNKNOWN INDICATION
  2. BENADRYL [Concomitant]
     Active Substance: DIPHENHYDRAMINE HYDROCHLORIDE
     Indication: DYSPNOEA
  3. REACTINE [Concomitant]
     Indication: PRODUCT USED FOR UNKNOWN INDICATION
  4. OMALIZUMAB. [Suspect]
     Active Substance: OMALIZUMAB
     Indication: CHRONIC SPONTANEOUS URTICARIA
  5. OMALIZUMAB. [Suspect]
     Active Substance: OMALIZUMAB
     Indication: CHRONIC SPONTANEOUS URTICARIA
     Route: 058

REACTIONS (14)
  - Swelling face [Unknown]
  - Chest pain [Unknown]
  - Oropharyngeal pain [Unknown]
  - Vomiting [Unknown]
  - White blood cell count decreased [Unknown]
  - Peripheral swelling [Unknown]
  - Nausea [Unknown]
  - Feeling abnormal [Unknown]
  - Dyspnoea [Unknown]
  - Malaise [Unknown]
  - Dizziness [Unknown]
  - Platelet count decreased [Unknown]
  - Epistaxis [Unknown]
  - Syncope [Unknown]
